FAERS Safety Report 6423662-6 (Version None)
Quarter: 2009Q4

REPORT INFORMATION
  Report Type: 
  Country: None (occurrence: None)
  Receive Date: 20091102
  Receipt Date: 20091026
  Transmission Date: 20100525
  Serious: Yes (Hospitalization, Disabling, Other)
  Sender: FDA-Public Use
  Company Number: US-MERCK-0811USA03806

PATIENT
  Age: 70 Year
  Sex: Female
  Weight: 55 kg

DRUGS (6)
  1. FOSAMAX [Suspect]
     Indication: OSTEOPENIA
     Route: 048
     Dates: start: 20010301, end: 20070901
  2. FOSAMAX [Suspect]
     Route: 048
     Dates: start: 19990601
  3. FOSAMAX [Suspect]
     Indication: OSTEOPOROSIS
     Route: 048
     Dates: start: 20010301, end: 20070901
  4. FOSAMAX [Suspect]
     Route: 048
     Dates: start: 19990601
  5. FOSAMAX PLUS D [Suspect]
     Indication: OSTEOPENIA
     Route: 048
  6. FOSAMAX PLUS D [Suspect]
     Indication: OSTEOPOROSIS
     Route: 048

REACTIONS (43)
  - ANAEMIA [None]
  - ANAEMIA OF CHRONIC DISEASE [None]
  - ARRHYTHMIA [None]
  - ARTERIAL THROMBOSIS [None]
  - ARTERIOVENOUS MALFORMATION [None]
  - BODY HEIGHT DECREASED [None]
  - BONE DENSITY DECREASED [None]
  - BUNDLE BRANCH BLOCK RIGHT [None]
  - CAROTID ARTERY STENOSIS [None]
  - CHEST INJURY [None]
  - COLITIS [None]
  - COLITIS ISCHAEMIC [None]
  - CONSTIPATION [None]
  - CORONARY ARTERY DISEASE [None]
  - CYSTOCELE [None]
  - DEHYDRATION [None]
  - DRUG HYPERSENSITIVITY [None]
  - DRUG INTOLERANCE [None]
  - DYSPLASIA [None]
  - FIBROSIS [None]
  - GASTRIC HAEMORRHAGE [None]
  - GASTROOESOPHAGEAL REFLUX DISEASE [None]
  - GINGIVAL DISORDER [None]
  - HALLUCINATION [None]
  - HEADACHE [None]
  - HYPERKERATOSIS [None]
  - IMPAIRED HEALING [None]
  - IRON DEFICIENCY ANAEMIA [None]
  - JAW DISORDER [None]
  - LIPOMA [None]
  - LOWER GASTROINTESTINAL HAEMORRHAGE [None]
  - LUMBAR VERTEBRAL FRACTURE [None]
  - OSTEONECROSIS [None]
  - PAPILLOMA VIRAL INFECTION [None]
  - PERIPHERAL VASCULAR DISORDER [None]
  - PNEUMOTHORAX [None]
  - PRESYNCOPE [None]
  - RIB FRACTURE [None]
  - SMEAR CERVIX ABNORMAL [None]
  - SYNCOPE [None]
  - TOOTH DISORDER [None]
  - URINARY TRACT INFECTION [None]
  - VAGINAL PROLAPSE [None]
